FAERS Safety Report 12627594 (Version 2)
Quarter: 2016Q3

REPORT INFORMATION
  Report Type: Spontaneous
  Country: US (occurrence: US)
  Receive Date: 20160805
  Receipt Date: 20160901
  Transmission Date: 20161109
  Serious: Yes (Hospitalization, Other)
  Sender: FDA-Public Use
  Company Number: US-RELYPSA-RLY2016001728

PATIENT
  Age: 60 Year
  Sex: Female

DRUGS (32)
  1. MULTIVITAMINS, PLAIN [Concomitant]
     Active Substance: VITAMINS
     Dosage: 1 TAB, QD
     Route: 048
  2. NIFEDIPINE. [Concomitant]
     Active Substance: NIFEDIPINE
     Indication: PROPHYLAXIS
     Dosage: 90 MG, Q.D.
     Route: 048
  3. RENVELA [Concomitant]
     Active Substance: SEVELAMER CARBONATE
     Dosage: 800 MG, TID, MEAL
     Route: 048
  4. SPIRIVA [Concomitant]
     Active Substance: TIOTROPIUM BROMIDE MONOHYDRATE
     Indication: PROPHYLAXIS
     Dosage: 2 PUFFS, QD
     Route: 048
  5. ZOFRAN [Concomitant]
     Active Substance: ONDANSETRON HYDROCHLORIDE
     Indication: VOMITING
  6. ALBUTEROL                          /00139501/ [Concomitant]
     Active Substance: ALBUTEROL
     Indication: DYSPNOEA
  7. ALBUTEROL                          /00139501/ [Concomitant]
     Active Substance: ALBUTEROL
     Indication: WHEEZING
  8. SYMBICORT [Concomitant]
     Active Substance: BUDESONIDE\FORMOTEROL FUMARATE DIHYDRATE
     Indication: PROPHYLAXIS
     Dosage: 2 PUFFS, BID
     Route: 048
  9. ARANESP [Concomitant]
     Active Substance: DARBEPOETIN ALFA
     Indication: PROPHYLAXIS
     Dosage: 25 MCG/ML, UNK
     Route: 042
  10. ZOFRAN [Concomitant]
     Active Substance: ONDANSETRON HYDROCHLORIDE
     Indication: NAUSEA
     Dosage: 4 MG, PRN
     Route: 042
  11. FOLIC ACID. [Concomitant]
     Active Substance: FOLIC ACID
     Indication: PROPHYLAXIS
     Dosage: 1 MG, Q.D.
     Route: 048
  12. TYLENOL [Concomitant]
     Active Substance: ACETAMINOPHEN
     Indication: PROPHYLAXIS
  13. DOCUSATE [Concomitant]
     Active Substance: DOCUSATE
     Indication: PROPHYLAXIS
     Dosage: 100 MG, B.I.D.
     Route: 048
  14. OXYCODONE [Concomitant]
     Active Substance: OXYCODONE
     Indication: PAIN
  15. ALBUTEROL                          /00139501/ [Concomitant]
     Active Substance: ALBUTEROL
     Indication: PROPHYLAXIS
     Dosage: 2 PUFFS, BID, PRN
     Route: 048
  16. CALCIUM ACETATE. [Concomitant]
     Active Substance: CALCIUM ACETATE
     Indication: PROPHYLAXIS
     Dosage: 667 MG, TID
     Route: 048
  17. LORAZEPAM. [Concomitant]
     Active Substance: LORAZEPAM
     Indication: PROPHYLAXIS
     Dosage: 2 TABS, AT BEDTIME,PRN
     Route: 048
  18. NICOTINE. [Concomitant]
     Active Substance: NICOTINE
     Indication: PROPHYLAXIS
     Dosage: 21 MG, Q24H
     Route: 061
  19. OMEPRAZOLE. [Concomitant]
     Active Substance: OMEPRAZOLE
     Indication: PROPHYLAXIS
     Dosage: 40 MG, Q.D.
     Route: 048
  20. CLONIDINE. [Concomitant]
     Active Substance: CLONIDINE
     Indication: PROPHYLAXIS
     Dosage: 0.2 MG, BID
     Route: 048
  21. FUROSEMIDE. [Concomitant]
     Active Substance: FUROSEMIDE
     Indication: PROPHYLAXIS
     Dosage: 160 MG, Q.D.
     Route: 048
  22. MUCINEX [Concomitant]
     Active Substance: GUAIFENESIN
     Indication: PROPHYLAXIS
     Dosage: 1200 MG, Q12H
     Route: 048
  23. MAGNESIUM OXIDE. [Concomitant]
     Active Substance: MAGNESIUM OXIDE
     Indication: PROPHYLAXIS
     Dosage: 400 MG, Q.D.
     Route: 048
  24. OXYCODONE [Concomitant]
     Active Substance: OXYCODONE
     Indication: PROPHYLAXIS
     Dosage: 1-2 TABS, QD, PRN
     Route: 048
  25. TYLENOL [Concomitant]
     Active Substance: ACETAMINOPHEN
     Indication: PAIN
     Dosage: 650 MG, Q4H
     Route: 048
  26. VENOFER [Concomitant]
     Active Substance: IRON SUCROSE
     Indication: PROPHYLAXIS
     Dosage: 100 MG, Q4W
     Route: 042
  27. IOHEXOL [Concomitant]
     Active Substance: IOHEXOL
     Dosage: 1000 ML, ONCE
     Route: 042
  28. ALLOPURINOL. [Concomitant]
     Active Substance: ALLOPURINOL
     Dosage: 100 MG, Q.D.
     Route: 048
  29. METOPROLOL TARTRATE. [Concomitant]
     Active Substance: METOPROLOL TARTRATE
     Indication: PROPHYLAXIS
     Dosage: 100 MG, TID
     Route: 048
  30. VELTASSA [Suspect]
     Active Substance: PATIROMER
     Indication: PRODUCT USED FOR UNKNOWN INDICATION
     Dosage: 16.8 G, Q.D.
     Route: 048
  31. ALTEPLASE [Concomitant]
     Active Substance: ALTEPLASE
     Dosage: UNK, PRN
     Route: 042
  32. ASPIRIN                            /00002701/ [Concomitant]
     Active Substance: ASPIRIN
     Indication: PROPHYLAXIS
     Dosage: 325 MG, Q.D.
     Route: 048

REACTIONS (3)
  - Acute respiratory failure [Unknown]
  - Pneumonia [Unknown]
  - Atrial fibrillation [Unknown]

NARRATIVE: CASE EVENT DATE: 20160613
